FAERS Safety Report 5723573-5 (Version None)
Quarter: 2008Q2

REPORT INFORMATION
  Report Type: 
  Country: None (occurrence: None)
  Receive Date: 20080430
  Receipt Date: 20080428
  Transmission Date: 20081010
  Serious: Yes (Hospitalization)
  Sender: FDA-Public Use
  Company Number: B0518004A

PATIENT
  Age: 90 Year
  Sex: Male

DRUGS (4)
  1. ARIXTRA [Suspect]
     Indication: THROMBOSIS PROPHYLAXIS
     Dosage: 1.5MG PER DAY
     Route: 058
     Dates: start: 20080401, end: 20080407
  2. ESTRACYT [Concomitant]
     Indication: PROSTATE CANCER
     Dosage: 4CAP PER DAY
     Route: 048
     Dates: start: 20080402
  3. STOGAR [Concomitant]
     Indication: ADVERSE DRUG REACTION
     Dosage: 10MG PER DAY
     Route: 048
  4. ASPIRIN [Concomitant]
     Indication: ADVERSE DRUG REACTION
     Dosage: 100MG PER DAY
     Route: 048
     Dates: start: 20080402

REACTIONS (3)
  - HAEMATOMA [None]
  - POST PROCEDURAL HAEMORRHAGE [None]
  - SWELLING [None]
